FAERS Safety Report 5512829-7 (Version None)
Quarter: 2007Q4

REPORT INFORMATION
  Report Type: 
  Country: None (occurrence: None)
  Receive Date: 20071108
  Receipt Date: 20071023
  Transmission Date: 20080405
  Serious: Yes (Hospitalization)
  Sender: FDA-Public Use
  Company Number: 000#8#2007-00306

PATIENT
  Age: 81 Year
  Sex: Male

DRUGS (1)
  1. ALPROSTADIL [Suspect]
     Indication: ARTERIAL OCCLUSIVE DISEASE
     Dosage: INTRAVENOUS (NOT OTHERWISE SPECIFIED)
     Route: 042

REACTIONS (7)
  - ERYTHEMA [None]
  - NAIL DYSTROPHY [None]
  - PSORIATIC ARTHROPATHY [None]
  - PUSTULAR PSORIASIS [None]
  - SKIN LESION [None]
  - SWELLING [None]
  - THERAPEUTIC RESPONSE DECREASED [None]
